FAERS Safety Report 7120990-6 (Version None)
Quarter: 2010Q4

REPORT INFORMATION
  Report Type: 
  Country: None (occurrence: None)
  Receive Date: 20101124
  Receipt Date: 20100118
  Transmission Date: 20110411
  Serious: Yes (Hospitalization)
  Sender: FDA-Public Use
  Company Number: US-PFIZER INC-2010007522

PATIENT
  Sex: Female
  Weight: 94.8 kg

DRUGS (18)
  1. TIKOSYN [Suspect]
     Indication: ATRIAL FIBRILLATION
     Dosage: FREQUENCY: 2X/DAY,
     Route: 048
     Dates: start: 20090601
  2. CUMADIN [Concomitant]
     Dosage: UNK
  3. LEVOTHYROXINE SODIUM [Concomitant]
     Dosage: 25 MG, DAILY
  4. ZOCOR [Concomitant]
     Dosage: 40 MG, DAILY
  5. DARVOCET [Concomitant]
     Indication: PAIN
     Dosage: 100 MG, AS NEEDED
  6. NEURONTIN [Concomitant]
     Dosage: FREQUENCY: 3X/DAY,
  7. AMBIEN [Concomitant]
     Indication: INSOMNIA
     Dosage: 12 MG, DAILY
  8. TIMOLOL MALEATE [Concomitant]
     Indication: EYE DISORDER
     Dosage: UNK
  9. KLOR-CON [Concomitant]
     Dosage: UNK
  10. BISOPROLOL [Concomitant]
     Dosage: 5 MG, DAILY
  11. BENAZEPRIL [Concomitant]
     Dosage: 40 MG, DAILY
  12. TRAVATAN [Concomitant]
     Dosage: 4 %, DAILY
  13. RANITIDINE [Concomitant]
     Dosage: 150 MG, DAILY
  14. AMITRIPTYLINE [Concomitant]
     Dosage: 25 MG, DAILY
  15. FLUSEMIDE [Concomitant]
     Dosage: 20 MG, AS NEEDED
  16. FISH OIL [Concomitant]
     Dosage: 1200 MG, DAILY
  17. MULTI-VITAMINS [Concomitant]
     Dosage: UNK
  18. CALCIUM WITH VITAMIN D [Concomitant]
     Dosage: 600 MG, DAILY

REACTIONS (1)
  - ATRIAL FIBRILLATION [None]
